FAERS Safety Report 21000947 (Version 2)
Quarter: 2022Q3

REPORT INFORMATION
  Report Type: Spontaneous
  Country: TR (occurrence: TR)
  Receive Date: 20220624
  Receipt Date: 20220708
  Transmission Date: 20221026
  Serious: Yes (Other)
  Sender: FDA-Public Use
  Company Number: TR-TEVA-2022-TR-2050220

PATIENT
  Age: 16 Year
  Sex: Female

DRUGS (3)
  1. CLARITHROMYCIN [Suspect]
     Active Substance: CLARITHROMYCIN
     Indication: Tonsillitis
     Dosage: 1000 MILLIGRAM DAILY;
     Route: 048
  2. Pseudoephedrine/desloratadine [Concomitant]
     Indication: Nasopharyngitis
     Route: 065
  3. Pseudoephedrine/desloratadine [Concomitant]
     Indication: Rash pruritic

REACTIONS (2)
  - Psychotic disorder [Recovered/Resolved]
  - Catatonia [Recovered/Resolved]
